FAERS Safety Report 8156550 (Version 4)
Quarter: 2012Q4

REPORT INFORMATION
  Report Type: 
  Country: US (occurrence: US)
  Receive Date: 20110926
  Receipt Date: 20121016
  Transmission Date: 20130627
  Serious: Yes (Other)
  Sender: FDA-Public Use
  Company Number: US-BAYER-2011-086022

PATIENT
  Age: 39 Year
  Sex: Female
  Weight: 72.56 kg

DRUGS (7)
  1. YAZ [Suspect]
     Indication: CONTRACEPTION
     Dosage: UNK
     Dates: start: 20090619, end: 20090808
  2. BENAZEPRIL [Concomitant]
     Indication: HYPERTENSION
     Dosage: 20 mg, daily
     Route: 048
     Dates: start: 2005
  3. CITALOPRAM [Concomitant]
     Indication: ANXIETY
     Dosage: 20 mg, daily
     Route: 048
     Dates: start: 2005
  4. CLONAZEPAM [Concomitant]
     Indication: CONVULSION
     Dosage: 1 mg, daily
     Route: 048
     Dates: start: 200903, end: 201001
  5. FIORICET [Concomitant]
     Indication: HEADACHE
     Dosage: UNK UNK, PRN
     Route: 048
     Dates: start: 20090619
  6. EXCEDRIN [ACETYLSALICYLIC ACID,CAFFEINE,PARACETAMOL,SALICYLAMIDE] [Concomitant]
  7. ALBUTEROL [Concomitant]
     Indication: ASTHMA
     Dosage: UNK UNK, PRN

REACTIONS (7)
  - Deep vein thrombosis [None]
  - Deep vein thrombosis [None]
  - Pain [None]
  - Pain in extremity [None]
  - Pain in extremity [None]
  - Oedema peripheral [None]
  - Anxiety disorder due to a general medical condition [None]
